FAERS Safety Report 5176420-7 (Version None)
Quarter: 2006Q4

REPORT INFORMATION
  Report Type: 
  Country: None (occurrence: None)
  Receive Date: 20061207
  Receipt Date: 20061121
  Transmission Date: 20070319
  Serious: Yes (Other)
  Sender: FDA-Public Use
  Company Number: 224660

PATIENT
  Age: 37 Year
  Sex: Male

DRUGS (1)
  1. RAPTIVA [Suspect]
     Indication: PSORIASIS
     Dosage: UNK, UNK, UNK

REACTIONS (2)
  - BENIGN FAMILIAL PEMPHIGUS [None]
  - CONDITION AGGRAVATED [None]
